FAERS Safety Report 5569554-6 (Version None)
Quarter: 2007Q4

REPORT INFORMATION
  Report Type: 
  Country: None (occurrence: None)
  Receive Date: 20071218
  Receipt Date: 20071203
  Transmission Date: 20080405
  Serious: Yes (Hospitalization)
  Sender: FDA-Public Use
  Company Number: 2007BI018201

PATIENT
  Age: 50 Year
  Sex: Female
  Weight: 60 kg

DRUGS (4)
  1. AVONEX [Suspect]
     Indication: RELAPSING-REMITTING MULTIPLE SCLEROSIS
     Dosage: 30 UG;QW;IM
     Route: 030
     Dates: start: 20050101
  2. ARILIN [Concomitant]
  3. CEFUROXIME [Concomitant]
  4. CLONT [Concomitant]

REACTIONS (3)
  - CERVIX CARCINOMA STAGE III [None]
  - MULTIPLE SCLEROSIS RELAPSE [None]
  - VAGINAL INFECTION [None]
